FAERS Safety Report 16930059 (Version 2)
Quarter: 2019Q4

REPORT INFORMATION
  Report Type: Spontaneous
  Country: US (occurrence: US)
  Receive Date: 20191017
  Receipt Date: 20191018
  Transmission Date: 20200122
  Serious: Yes (Hospitalization)
  Sender: FDA-Public Use
  Company Number: US-JNJFOC-20191010656

PATIENT
  Sex: Female
  Weight: 113.5 kg

DRUGS (3)
  1. RISPERDAL [Suspect]
     Active Substance: RISPERIDONE
     Indication: DEPRESSION
     Route: 065
     Dates: start: 2019, end: 201909
  2. GABAPENTIN. [Concomitant]
     Active Substance: GABAPENTIN
     Indication: DEPRESSION
     Route: 065
     Dates: start: 201309
  3. INVEGA SUSTENNA [Suspect]
     Active Substance: PALIPERIDONE PALMITATE
     Indication: PRODUCT USED FOR UNKNOWN INDICATION
     Route: 030
     Dates: start: 20190930

REACTIONS (5)
  - Seizure [Unknown]
  - Incorrect dose administered [Unknown]
  - Off label use [Unknown]
  - Orthostatic hypotension [Unknown]
  - Cystitis [Unknown]

NARRATIVE: CASE EVENT DATE: 2019
